FAERS Safety Report 10166614 (Version 1)
Quarter: 2014Q2

REPORT INFORMATION
  Report Type: Spontaneous
  Country: US (occurrence: None)
  Receive Date: 20140509
  Receipt Date: 20140509
  Transmission Date: 20141212
  Serious: Yes (Hospitalization)
  Sender: FDA-Public Use
  Company Number: None

PATIENT
  Age: 3 Year
  Sex: Female

DRUGS (8)
  1. PROVENTIL [Suspect]
     Indication: PRODUCT USED FOR UNKNOWN INDICATION
     Dosage: 180 MCG?EVERY 4 TO 6 HRS PRN?INHALER
     Route: 055
     Dates: start: 20111222
  2. PHENOBARB [Concomitant]
  3. OMEPRAZOLE [Concomitant]
  4. SPIRONOLACTONE [Concomitant]
  5. ASPIRIN [Concomitant]
  6. POTASSIUM [Concomitant]
  7. LORATADINE [Concomitant]
  8. DIAZEPAM [Concomitant]

REACTIONS (1)
  - Investigation [None]
